FAERS Safety Report 9429178 (Version 2)
Quarter: 2013Q3

REPORT INFORMATION
  Report Type: Report from Study
  Country: US (occurrence: US)
  Receive Date: 20130730
  Receipt Date: 20130808
  Transmission Date: 20140515
  Serious: Yes (Death, Life-Threatening)
  Sender: FDA-Public Use
  Company Number: US-PFIZER INC-2013214827

PATIENT
  Age: 87 Year
  Sex: Female
  Weight: 51.8 kg

DRUGS (18)
  1. VANCOMYCIN HCL [Suspect]
     Indication: STAPHYLOCOCCAL BACTERAEMIA
     Dosage: 1 G, ONCE
     Route: 042
     Dates: start: 20130625, end: 20130625
  2. VANCOMYCIN HCL [Suspect]
     Dosage: 1 G, ONCE
     Route: 042
     Dates: start: 20130703, end: 20130703
  3. HEPARIN SODIUM [Suspect]
     Indication: THROMBOSIS PROPHYLAXIS
     Dosage: 15000 UNITS (1 IN 8 HR)
     Route: 058
     Dates: start: 20130623, end: 20130703
  4. PREDNISONE [Suspect]
     Indication: PAIN
     Dosage: 20 MG, 1 IN 1 D
     Route: 048
     Dates: start: 20130624, end: 20130703
  5. ASPIRIN [Suspect]
     Indication: CARDIOVASCULAR EVENT PROPHYLAXIS
     Dosage: 81 MG, 1 IN 1 D
     Route: 048
     Dates: start: 2011, end: 20130703
  6. NAFCILLIN [Suspect]
     Indication: STAPHYLOCOCCAL BACTERAEMIA
     Dosage: 12 G, (2 GM 1 IN 4 HR)
     Route: 042
     Dates: start: 20130630, end: 20130703
  7. CARDIZEM CD [Concomitant]
     Indication: HYPERTENSION
     Dosage: 180 MG, 1 IN 1 D
     Route: 048
     Dates: start: 2011, end: 20130703
  8. COLACE [Concomitant]
     Indication: CONSTIPATION
     Dosage: 200 MG, (100 MG 2 IN 1 D)
     Route: 048
     Dates: start: 20130625, end: 20130704
  9. SYNTHROID [Concomitant]
     Indication: HYPOTHYROIDISM
     Dosage: 25 UG, (1 IN 1 D)
     Route: 048
     Dates: start: 2011, end: 20130703
  10. LIDOCAINE [Concomitant]
     Indication: PAIN
     Dosage: 1 DF, 1X/DAY
     Route: 062
     Dates: start: 20130629, end: 20130703
  11. PRILOSEC [Concomitant]
     Indication: GASTROOESOPHAGEAL REFLUX DISEASE
     Dosage: 20 MG, 1 IN 1 D
     Route: 048
     Dates: start: 2011, end: 20130703
  12. EXELON [Concomitant]
     Indication: DEMENTIA
     Dosage: 9.5 MG, 1 IN 1 D,
     Route: 062
     Dates: start: 2010, end: 20130703
  13. EXELON [Concomitant]
     Dosage: 4.6 MG, 1 IN 1 D, THERAPY DURATION: 6 DAYS
     Route: 062
     Dates: start: 20130624, end: 20130630
  14. TYLENOL [Concomitant]
     Indication: PAIN
     Dosage: 650 MG, Q4 AS NEEDED,
     Route: 048
     Dates: start: 20130623, end: 20130703
  15. ALBUTEROL [Concomitant]
     Indication: WHEEZING
     Dosage: 2.5 MG,  Q6 PRN, ROUTE: NEBULIZER
     Route: 055
     Dates: start: 20130628, end: 20130628
  16. ATIVAN [Concomitant]
     Indication: AGITATION
     Dosage: 2 MG, ONCE
     Route: 042
     Dates: start: 20130629, end: 20130629
  17. XANAX [Concomitant]
     Indication: AGITATION
     Dosage: 0.25 MG, ONCE
     Route: 048
     Dates: start: 20130628, end: 20130628
  18. LASIX [Concomitant]
     Dosage: 20 MG, ONCE
     Route: 042
     Dates: start: 20130629, end: 20130629

REACTIONS (2)
  - Lower gastrointestinal haemorrhage [Fatal]
  - Haemorrhage [Fatal]
